FAERS Safety Report 8341369-5 (Version None)
Quarter: 2012Q2

REPORT INFORMATION
  Report Type: 
  Country: None (occurrence: None)
  Receive Date: 20120507
  Receipt Date: 20120503
  Transmission Date: 20120825
  Serious: Yes (Hospitalization)
  Sender: FDA-Public Use
  Company Number: US-JNJFOC-20120412543

PATIENT
  Age: 79 Year
  Sex: Male

DRUGS (11)
  1. SIMVASTATIN [Concomitant]
     Indication: BLOOD CHOLESTEROL
  2. VITAMIN A [Concomitant]
  3. ASPIRIN [Suspect]
     Route: 048
     Dates: start: 20120501
  4. METOPROLOL TARTRATE [Concomitant]
     Indication: CARDIAC DISORDER
     Route: 048
  5. MULTIVITAMINS WITH IRON [Concomitant]
  6. VITAMIN C [Concomitant]
  7. VITAMIN D [Concomitant]
  8. ASPIRIN [Suspect]
     Indication: ILL-DEFINED DISORDER
     Route: 048
  9. OMEPRAZOLE [Concomitant]
  10. FISH OIL [Concomitant]
  11. XARELTO [Suspect]
     Indication: ATRIAL FIBRILLATION
     Route: 048
     Dates: start: 20120101, end: 20120419

REACTIONS (3)
  - CATARACT OPERATION [None]
  - ATRIAL FIBRILLATION [None]
  - SPLENIC RUPTURE [None]
